FAERS Safety Report 14821782 (Version 1)
Quarter: 2018Q2

REPORT INFORMATION
  Report Type: Spontaneous
  Country: US (occurrence: US)
  Receive Date: 20180427
  Receipt Date: 20180427
  Transmission Date: 20180711
  Serious: Yes (Other)
  Sender: FDA-Public Use
  Company Number: US-TARO-2018TAR00309

PATIENT
  Sex: Female
  Weight: 77.98 kg

DRUGS (1)
  1. LORATADINE SYRUP (LORATADINE ORAL SOLUTION USP) 5MG/5ML [Suspect]
     Active Substance: LORATADINE
     Dosage: 5 MG, ONCE
     Route: 048
     Dates: start: 20180418, end: 20180418

REACTIONS (7)
  - Mouth swelling [Recovering/Resolving]
  - Dysphagia [Recovering/Resolving]
  - Product quality issue [Recovered/Resolved]
  - Tonsillitis [Recovering/Resolving]
  - Tongue disorder [Recovering/Resolving]
  - Oropharyngeal blistering [Recovering/Resolving]
  - Pharyngeal oedema [Recovering/Resolving]

NARRATIVE: CASE EVENT DATE: 20180418
